FAERS Safety Report 5646843-8 (Version None)
Quarter: 2008Q1

REPORT INFORMATION
  Report Type: 
  Country: None (occurrence: None)
  Receive Date: 20080303
  Receipt Date: 20080220
  Transmission Date: 20080703
  Serious: Yes (Death, Life-Threatening)
  Sender: FDA-Public Use
  Company Number: IT-ELI_LILLY_AND_COMPANY-IT200802004960

PATIENT
  Sex: Female

DRUGS (7)
  1. XIGRIS [Suspect]
     Indication: SEPTIC SHOCK
     Dosage: 15.8 ML, EVERY HOUR
     Route: 042
     Dates: start: 20041225, end: 20041227
  2. IMIPENEM [Concomitant]
     Dosage: 2000 MG, UNKNOWN
  3. CEFEPIME [Concomitant]
     Dosage: 4 G, UNKNOWN
  4. NOREPINEPHRINE [Concomitant]
     Dosage: UNK, UNKNOWN
  5. DIFLUCAN [Concomitant]
     Dosage: 800 MG, UNKNOWN
  6. ZYVOX [Concomitant]
     Dosage: 1200 MG, UNK
  7. LASIX [Concomitant]
     Dosage: UNK, UNKNOWN

REACTIONS (2)
  - DEATH [None]
  - GASTROINTESTINAL HAEMORRHAGE [None]
